FAERS Safety Report 11838423 (Version 2)
Quarter: 2015Q4

REPORT INFORMATION
  Report Type: Spontaneous
  Country: US (occurrence: US)
  Receive Date: 20151215
  Receipt Date: 20151228
  Transmission Date: 20160305
  Serious: No
  Sender: FDA-Public Use
  Company Number: US-PFIZER INC-2015410316

PATIENT
  Sex: Female

DRUGS (4)
  1. CLEOCIN [Suspect]
     Active Substance: CLINDAMYCIN PHOSPHATE
     Dosage: UNK
  2. CEPHALOSPORIN C [Suspect]
     Active Substance: CEPHALOSPORIN C
     Dosage: UNK
  3. MASTISOL [Suspect]
     Active Substance: DEVICE
     Dosage: UNK
  4. VESICARE [Suspect]
     Active Substance: SOLIFENACIN SUCCINATE
     Dosage: UNK

REACTIONS (1)
  - Drug hypersensitivity [Unknown]
